FAERS Safety Report 21757627 (Version 1)
Quarter: 2022Q4

REPORT INFORMATION
  Report Type: Spontaneous
  Country: US (occurrence: US)
  Receive Date: 20221221
  Receipt Date: 20221221
  Transmission Date: 20230113
  Serious: No
  Sender: FDA-Public Use
  Company Number: US-CELLTRION INC.-2022US010126

PATIENT

DRUGS (1)
  1. TRUXIMA [Suspect]
     Active Substance: RITUXIMAB-ABBS
     Indication: Epstein-Barr virus infection
     Dosage: 724 MG WEEKLY (4 DOSES)

REACTIONS (2)
  - Epstein-Barr virus infection [Unknown]
  - Off label use [Unknown]
